FAERS Safety Report 24996022 (Version 1)
Quarter: 2025Q1

REPORT INFORMATION
  Report Type: Spontaneous
  Country: US (occurrence: US)
  Receive Date: 20250221
  Receipt Date: 20250221
  Transmission Date: 20250409
  Serious: No
  Sender: CATALYST PHARMA
  Company Number: US-CATALYST PHARMACEUTICALS-US-CATA-24-01561

PATIENT
  Age: 8 Year
  Sex: Male
  Weight: 41.1 kg

DRUGS (4)
  1. AGAMREE [Suspect]
     Active Substance: VAMOROLONE
     Indication: Duchenne muscular dystrophy
     Dosage: 4.2 ML DAILY
     Route: 048
     Dates: start: 20240202, end: 202407
  2. AGAMREE [Suspect]
     Active Substance: VAMOROLONE
     Dosage: 4.5 ML DAILY
     Route: 048
     Dates: start: 202407
  3. CHILDRENS ZYRTEC ALLERGY [Concomitant]
     Active Substance: CETIRIZINE HYDROCHLORIDE
     Indication: Product used for unknown indication
     Dosage: 5 ML DAILY
     Route: 065
  4. VITAMIN D [Concomitant]
     Active Substance: VITAMIN D NOS
     Indication: Product used for unknown indication
     Dosage: 50 MCG 2000 UNITS DAILY
     Route: 048
     Dates: start: 2021

REACTIONS (1)
  - Gastroenteritis viral [Recovered/Resolved]

NARRATIVE: CASE EVENT DATE: 20241207
